FAERS Safety Report 4975933-8 (Version None)
Quarter: 2006Q2

REPORT INFORMATION
  Report Type: 
  Country: None (occurrence: None)
  Receive Date: 20060418
  Receipt Date: 20051110
  Transmission Date: 20061013
  Serious: Yes (Hospitalization)
  Sender: FDA-Public Use
  Company Number: US-MERCK-0511USA02065

PATIENT
  Age: 60 Year
  Sex: Male
  Weight: 81 kg

DRUGS (4)
  1. VIOXX [Suspect]
     Indication: MONARTHRITIS
     Route: 048
     Dates: start: 19991201, end: 20040917
  2. IMDUR [Concomitant]
     Route: 065
  3. ASPIRIN [Concomitant]
     Route: 065
  4. ACIPHEX [Concomitant]
     Route: 065

REACTIONS (5)
  - ARTHROPATHY [None]
  - BLOOD CHOLESTEROL INCREASED [None]
  - HERPES SIMPLEX [None]
  - INTESTINAL FUNCTIONAL DISORDER [None]
  - MYOCARDIAL INFARCTION [None]
